FAERS Safety Report 10274636 (Version 1)
Quarter: 2014Q3

REPORT INFORMATION
  Report Type: Report from Study
  Country: US (occurrence: US)
  Receive Date: 20140702
  Receipt Date: 20140702
  Transmission Date: 20150326
  Serious: Yes (Other)
  Sender: FDA-Public Use
  Company Number: US-ALEXION PHARMACEUTICALS INC.-A201001927

PATIENT

DRUGS (1)
  1. SOLIRIS [Suspect]
     Active Substance: ECULIZUMAB
     Indication: PAROXYSMAL NOCTURNAL HAEMOGLOBINURIA
     Dosage: UNK
     Route: 042

REACTIONS (8)
  - Renal disorder [Unknown]
  - Iron overload [Unknown]
  - Hypertension [Unknown]
  - Knee arthroplasty [Unknown]
  - Osteoporosis [Unknown]
  - Blood cholesterol increased [Unknown]
  - Hepatitis C [Unknown]
  - Liver disorder [Unknown]
